FAERS Safety Report 6924444-9 (Version None)
Quarter: 2010Q3

REPORT INFORMATION
  Report Type: 
  Country: None (occurrence: None)
  Receive Date: 20100811
  Receipt Date: 20100714
  Transmission Date: 20110219
  Serious: Yes (Other)
  Sender: FDA-Public Use
  Company Number: CTI_01215_2010

PATIENT
  Age: 36 Year
  Sex: Female

DRUGS (1)
  1. MEIACT (MEIACT MS (CEDFITOREN PIVOXIL)) (NOT SPECIFIED) [Suspect]
     Indication: PRODUCT USED FOR UNKNOWN INDICATION
     Dosage: (DF ORAL)
     Route: 048
     Dates: start: 20090501, end: 20090501

REACTIONS (1)
  - ANAPHYLACTIC SHOCK [None]
